FAERS Safety Report 6335363-3 (Version None)
Quarter: 2009Q3

REPORT INFORMATION
  Report Type: 
  Country: None (occurrence: None)
  Receive Date: 20090827
  Receipt Date: 20090825
  Transmission Date: 20100115
  Serious: Yes (Hospitalization)
  Sender: FDA-Public Use
  Company Number: GXKR2009DK08478

PATIENT
  Age: 57 Year
  Sex: Female

DRUGS (4)
  1. ALENDRONIC ACID (NGX) (ALENDRONIC ACID) TABLET, 70MG [Suspect]
     Indication: OSTEOPOROSIS PROPHYLAXIS
     Dosage: 70 MG, SINGLE/ONCE, ORAL
     Route: 048
     Dates: start: 20090616, end: 20090617
  2. ACLASTA (ZOLEDRONATE) UNKNOWN, 0.05MG/ML [Suspect]
     Indication: OSTEOPOROSIS
     Dosage: 5 MG, ONCE/SINGLE, INTRAVENOUS
     Route: 042
     Dates: start: 20090625
  3. PREDNISOLONE [Concomitant]
  4. METHOTREXAT (METHOTREXATE) [Concomitant]

REACTIONS (5)
  - ANAEMIA [None]
  - HYPONATRAEMIA [None]
  - INFLAMMATION [None]
  - PYELONEPHRITIS [None]
  - VOMITING [None]
